FAERS Safety Report 5452089-9 (Version None)
Quarter: 2007Q3

REPORT INFORMATION
  Report Type: 
  Country: None (occurrence: None)
  Receive Date: 20070803
  Receipt Date: 20060719
  Transmission Date: 20080115
  Serious: Yes (Hospitalization)
  Sender: FDA-Public Use
  Company Number: 06P-163-0338468-00

PATIENT
  Sex: Male

DRUGS (2)
  1. NORVIR [Suspect]
     Indication: HIV INFECTION
     Dosage: 100 MG, 1 IN 1 D, PER ORAL
     Route: 048
  2. APTIVUS [Suspect]
     Indication: HIV INFECTION
     Dosage: 250 MG, 1 IN 1 D, PER ORAL
     Route: 048

REACTIONS (1)
  - HEPATITIS [None]
